FAERS Safety Report 11013762 (Version 2)
Quarter: 2015Q2

REPORT INFORMATION
  Report Type: Spontaneous
  Country: US (occurrence: US)
  Receive Date: 20150412
  Receipt Date: 20150526
  Transmission Date: 20150821
  Serious: No
  Sender: FDA-Public Use
  Company Number: US-JNJFOC-20130801423

PATIENT

DRUGS (2)
  1. PANCRELIPASE. [Suspect]
     Active Substance: PANCRELIPASE
     Indication: PANCREATITIS
     Route: 065
  2. PANCRELIPASE. [Suspect]
     Active Substance: PANCRELIPASE
     Indication: PANCREATITIS
     Route: 065

REACTIONS (1)
  - Constipation [Unknown]
